FAERS Safety Report 8386042-2 (Version None)
Quarter: 2012Q2

REPORT INFORMATION
  Report Type: 
  Country: None (occurrence: None)
  Receive Date: 20120525
  Receipt Date: 20120521
  Transmission Date: 20120825
  Serious: Yes (Hospitalization)
  Sender: FDA-Public Use
  Company Number: JP-BAYER-2012-032492

PATIENT
  Age: 85 Year
  Sex: Male
  Weight: 60 kg

DRUGS (8)
  1. CERNILTON [Concomitant]
     Indication: DYSURIA
     Dosage: DAILY DOSE 189 MG
     Route: 048
     Dates: start: 20110509
  2. AMPICILLIN [Concomitant]
     Dosage: DAILY DOSE 4 G
     Dates: start: 20110508, end: 20110519
  3. AVELOX [Suspect]
     Indication: PNEUMONIA
     Dosage: 400 MG, QD
     Route: 048
     Dates: start: 20110519, end: 20110525
  4. MIYA BM [Concomitant]
     Indication: ENTEROCOLITIS
     Dosage: DAILY DOSE 3 G
     Route: 048
     Dates: start: 20110519
  5. FLIVASTATIN SODIUM [Concomitant]
     Indication: DYSURIA
     Dosage: DAILY DOSE 50 MG
     Route: 048
     Dates: start: 20110509
  6. TORSEMIDE [Suspect]
     Indication: OEDEMA
     Dosage: DAILY DOSE 4 MG
     Route: 048
     Dates: start: 20110519, end: 20110525
  7. AMPICILLIN SODIUM W/SULBACTRAM SODIUM [Concomitant]
     Dosage: DAILY DOSE 6 G
     Dates: start: 20110506, end: 20110519
  8. AVELOX [Suspect]
     Indication: PROSTATITIS

REACTIONS (2)
  - INTERSTITIAL LUNG DISEASE [None]
  - DRUG ERUPTION [None]
